FAERS Safety Report 6818184-4 (Version None)
Quarter: 2010Q3

REPORT INFORMATION
  Report Type: 
  Country: None (occurrence: None)
  Receive Date: 20100706
  Receipt Date: 20070720
  Transmission Date: 20110219
  Serious: No
  Sender: FDA-Public Use
  Company Number: US-PFIZER INC-2007061549

PATIENT
  Age: 18 Year
  Sex: Female
  Weight: 58.97 kg

DRUGS (2)
  1. AZITHROMYCIN [Suspect]
     Indication: PHARYNGITIS STREPTOCOCCAL
     Dates: start: 20070720
  2. INSULIN [Concomitant]

REACTIONS (1)
  - ABDOMINAL DISCOMFORT [None]
